FAERS Safety Report 13560713 (Version 1)
Quarter: 2017Q2

REPORT INFORMATION
  Report Type: Spontaneous
  Country: TR (occurrence: TR)
  Receive Date: 20170518
  Receipt Date: 20170518
  Transmission Date: 20170830
  Serious: Yes (Hospitalization, Other)
  Sender: FDA-Public Use
  Company Number: TR-MYLANLABS-2017M1030020

PATIENT

DRUGS (4)
  1. CETUXIMAB. [Concomitant]
     Active Substance: CETUXIMAB
     Indication: RECTAL CANCER METASTATIC
     Dosage: 500MG/M2 ON DAY 1 AS A PART OF MFOLFOX6 REGIMEN FOR 12 CYCLES AND THEN RECEIVED MAINTANANCE THERAPY
     Route: 065
  2. OXALIPLATIN. [Suspect]
     Active Substance: OXALIPLATIN
     Dosage: BIWEEKLY MAINTAINANCE THERAPY AT AN UNKNOWN DOSE FOR 8 CYCLES
     Route: 050
  3. OXALIPLATIN. [Suspect]
     Active Substance: OXALIPLATIN
     Indication: RECTAL CANCER METASTATIC
     Dosage: 85MG/M2 ON DAY1 AS A PART OF MFOLFOX6 REGIMEN FOR 12 CYCLES
     Route: 050
  4. CETUXIMAB. [Concomitant]
     Active Substance: CETUXIMAB
     Dosage: BIWEEKLY MAINTAINANCE THERAPY AT AN UNKNOWN DOSE FOR 8 CYCLES
     Route: 065

REACTIONS (1)
  - Immune thrombocytopenic purpura [Recovered/Resolved]
